FAERS Safety Report 10676747 (Version 1)
Quarter: 2014Q4

REPORT INFORMATION
  Report Type: Spontaneous
  Country: US (occurrence: US)
  Receive Date: 20141226
  Receipt Date: 20141226
  Transmission Date: 20150529
  Serious: Yes (Hospitalization)
  Sender: FDA-Public Use
  Company Number: US-BRISTOL-MYERS SQUIBB COMPANY-BMS-2014-002312

PATIENT
  Sex: Female
  Weight: 86.17 kg

DRUGS (2)
  1. METOPROLOL [Concomitant]
     Active Substance: METOPROLOL
  2. ELIQUIS [Suspect]
     Active Substance: APIXABAN
     Indication: PRODUCT USED FOR UNKNOWN INDICATION
     Dosage: 2.5 MG, BID
     Route: 065

REACTIONS (1)
  - Dyspnoea [Unknown]
